FAERS Safety Report 5843207-9 (Version None)
Quarter: 2008Q3

REPORT INFORMATION
  Report Type: 
  Country: None (occurrence: None)
  Receive Date: 20080813
  Receipt Date: 20080805
  Transmission Date: 20090109
  Serious: Yes (Other)
  Sender: FDA-Public Use
  Company Number: PHBS2006GR07319

PATIENT
  Sex: Female
  Weight: 69 kg

DRUGS (4)
  1. DIOVAN HCT [Suspect]
     Dosage: UNK, UNK
     Route: 048
  2. CALVIDIN [Interacting]
  3. KERLONE [Concomitant]
  4. THYROHORMONE [Concomitant]
     Dosage: 0.5

REACTIONS (4)
  - CATARACT [None]
  - CATARACT OPERATION [None]
  - DRUG INTERACTION [None]
  - VISUAL IMPAIRMENT [None]
